FAERS Safety Report 24675593 (Version 2)
Quarter: 2024Q4

REPORT INFORMATION
  Report Type: Spontaneous
  Country: US (occurrence: US)
  Receive Date: 20241128
  Receipt Date: 20241203
  Transmission Date: 20250114
  Serious: Yes (Other)
  Sender: PFIZER
  Company Number: US-MLMSERVICE-20241119-PI263179-00218-1

PATIENT
  Age: 41 Year
  Sex: Female

DRUGS (13)
  1. METHOTREXATE SODIUM [Suspect]
     Active Substance: METHOTREXATE SODIUM
     Indication: Proliferative vitreoretinopathy
     Dosage: 40 MG OF METHOTREXATE WAS PLACED INTO THE 500ML BSS POSTERIOR SEGMENT INFUSION BOTTLE
  2. METHOTREXATE SODIUM [Suspect]
     Active Substance: METHOTREXATE SODIUM
     Dosage: INTRAVITREAL 200 UG/0.05ML METHOTREXATE EVERY TWO WEEKS FOR A TOTAL OF FIVE INJECTIONS
     Route: 031
  3. METHOTREXATE SODIUM [Suspect]
     Active Substance: METHOTREXATE SODIUM
     Dosage: INTRAVITREAL 200 UG/0.05ML, MONTHLY INJECTIONS
     Route: 031
  4. DIFLUPREDNATE [Concomitant]
     Active Substance: DIFLUPREDNATE
     Indication: Aniridia
     Dosage: UNK, EVERY 4 HRS (SIX TIMES DAILY)
  5. DIFLUPREDNATE [Concomitant]
     Active Substance: DIFLUPREDNATE
     Dosage: POSTOPERATIVELY, THE PATIENT^S DIFLUPREDNATE REGIMEN WAS INCREASED TO EVERY 2 H
  6. DIFLUPREDNATE [Concomitant]
     Active Substance: DIFLUPREDNATE
     Dosage: DIFLUPREDNATE TAPER WAS INITIATED AT THIS VISIT, EVERY 2 HRS
  7. DIFLUPREDNATE [Concomitant]
     Active Substance: DIFLUPREDNATE
     Dosage: UNK, DIFLUPREDNATE DROPS EVERY 2 H
  8. CYCLOSPORINE [Concomitant]
     Active Substance: CYCLOSPORINE
     Indication: Aniridia
     Dosage: UNK, 2X/DAY
  9. BRIMONIDINE TARTRATE\TIMOLOL MALEATE [Concomitant]
     Active Substance: BRIMONIDINE TARTRATE\TIMOLOL MALEATE
     Indication: Aniridia
     Dosage: UNK, 2X/DAY
  10. PREDNISONE [Concomitant]
     Active Substance: PREDNISONE
     Dosage: TAPER
     Route: 048
  11. MYCOPHENOLIC ACID [Concomitant]
     Active Substance: MYCOPHENOLIC ACID
     Dosage: UNK
  12. TACROLIMUS [Concomitant]
     Active Substance: TACROLIMUS
     Dosage: UNK
  13. VALGANCICLOVIR [Concomitant]
     Active Substance: VALGANCICLOVIR
     Dosage: UNK

REACTIONS (4)
  - Punctate keratitis [Unknown]
  - Corneal epithelium defect [Recovered/Resolved]
  - Corneal toxicity [Unknown]
  - Off label use [Unknown]
